FAERS Safety Report 6157530-4 (Version None)
Quarter: 2009Q2

REPORT INFORMATION
  Report Type: 
  Country: None (occurrence: None)
  Receive Date: 20090416
  Receipt Date: 20090403
  Transmission Date: 20091009
  Serious: Yes (Hospitalization)
  Sender: FDA-Public Use
  Company Number: US-PFIZER INC-2008096571

PATIENT
  Sex: Male
  Weight: 88 kg

DRUGS (10)
  1. SUTENT [Suspect]
     Indication: RENAL CELL CARCINOMA
     Dosage: 37.5 MG, EVERY OTHER DAY
     Route: 048
     Dates: start: 20080909
  2. ERLOTINIB [Suspect]
     Indication: RENAL CELL CARCINOMA
     Dosage: 125 MG, EVERY OTHER DAY
     Route: 048
     Dates: start: 20080909
  3. LIPITOR [Concomitant]
  4. LISINOPRIL [Concomitant]
     Route: 048
  5. MINOCYCLINE [Concomitant]
     Route: 048
  6. NIACIN [Concomitant]
     Route: 048
  7. PANTOPRAZOLE SODIUM [Concomitant]
     Route: 048
  8. POTASSIUM CHLORIDE [Concomitant]
     Route: 048
  9. ALEVE [Concomitant]
     Dosage: DAILY
     Route: 048
  10. ALLOPURINOL [Concomitant]
     Dosage: 100 MG, 1X/DAY
     Route: 048

REACTIONS (1)
  - RENAL FAILURE [None]
